FAERS Safety Report 5975223-0 (Version None)
Quarter: 2008Q4

REPORT INFORMATION
  Report Type: 
  Country: None (occurrence: None)
  Receive Date: 20081202
  Receipt Date: 20080602
  Transmission Date: 20090506
  Serious: No
  Sender: FDA-Public Use
  Company Number: US-BAYER-200812407BCC

PATIENT
  Age: 13 Year
  Sex: Female
  Weight: 34 kg

DRUGS (1)
  1. MIDOL [Suspect]
     Indication: HEADACHE
     Dosage: UNIT DOSE: 1 DF
     Route: 048
     Dates: start: 20080530, end: 20080530

REACTIONS (2)
  - PYREXIA [None]
  - VOMITING [None]
